FAERS Safety Report 4939546-6 (Version None)
Quarter: 2006Q1

REPORT INFORMATION
  Report Type: 
  Country: None (occurrence: None)
  Receive Date: 20060310
  Receipt Date: 20060104
  Transmission Date: 20060701
  Serious: Yes (Hospitalization)
  Sender: FDA-Public Use
  Company Number: FR-AVENTIS-200610098EU

PATIENT
  Age: 51 Year
  Sex: Female

DRUGS (2)
  1. LOZIDE [Suspect]
     Indication: HYPERTENSION
     Route: 048
     Dates: start: 20040608, end: 20040611
  2. MONOCOR [Suspect]
     Indication: HYPERTENSION
     Route: 048
     Dates: start: 20030101, end: 20040611

REACTIONS (4)
  - ANGIONEUROTIC OEDEMA [None]
  - DIZZINESS [None]
  - GASTROOESOPHAGEAL REFLUX DISEASE [None]
  - URTICARIA [None]
